FAERS Safety Report 7576545-2 (Version None)
Quarter: 2011Q2

REPORT INFORMATION
  Report Type: 
  Country: None (occurrence: None)
  Receive Date: 20110628
  Receipt Date: 20110601
  Transmission Date: 20111010
  Serious: Yes (Hospitalization, Other)
  Sender: FDA-Public Use
  Company Number: US-BAYER-2011-021531

PATIENT
  Sex: Female

DRUGS (11)
  1. YASMIN [Suspect]
     Indication: PRODUCT USED FOR UNKNOWN INDICATION
     Dosage: UNK
     Dates: start: 20041101, end: 20060301
  2. NSAID'S [Concomitant]
  3. INVEGA [Concomitant]
  4. TRAZODONE HCL [Concomitant]
  5. LAMICTAL [Concomitant]
  6. SYNTHROID [Concomitant]
  7. WELLBUTRIN [Concomitant]
  8. LITHIUM CARBONATE [Concomitant]
  9. ABILIFY [Concomitant]
  10. RISPERDAL [Concomitant]
  11. ZANTAC [Concomitant]

REACTIONS (6)
  - INJURY [None]
  - CHOLECYSTITIS CHRONIC [None]
  - PAIN [None]
  - CHOLELITHIASIS [None]
  - GALLBLADDER DISORDER [None]
  - CHOLECYSTITIS ACUTE [None]
